FAERS Safety Report 17069862 (Version 3)
Quarter: 2019Q4

REPORT INFORMATION
  Report Type: Spontaneous
  Country: JP (occurrence: JP)
  Receive Date: 20191125
  Receipt Date: 20191220
  Transmission Date: 20200122
  Serious: Yes (Death, Other)
  Sender: FDA-Public Use
  Company Number: JP-009507513-1909JPN003601J

PATIENT
  Age: 33 Year
  Sex: Female

DRUGS (1)
  1. KEYTRUDA [Suspect]
     Active Substance: PEMBROLIZUMAB
     Indication: MALIGNANT HYDATIDIFORM MOLE
     Dosage: 2 MILLIGRAM/KILOGRAM, Q3W
     Route: 041
     Dates: start: 20180607, end: 201809

REACTIONS (3)
  - Malignant neoplasm progression [Fatal]
  - Immune thrombocytopenic purpura [Fatal]
  - Off label use [Unknown]

NARRATIVE: CASE EVENT DATE: 20180607
